FAERS Safety Report 24075983 (Version 2)
Quarter: 2024Q3

REPORT INFORMATION
  Report Type: Spontaneous
  Country: US (occurrence: US)
  Receive Date: 20240710
  Receipt Date: 20240826
  Transmission Date: 20241016
  Serious: No
  Sender: INSUD PHARMA
  Company Number: US-INSUD PHARMA-2406US05193

PATIENT

DRUGS (1)
  1. PROGESTERONE [Suspect]
     Active Substance: PROGESTERONE
     Indication: Hormone therapy
     Dosage: 100 MILLIGRAM, QD
     Route: 048
     Dates: start: 202406

REACTIONS (7)
  - Thirst [Recovered/Resolved]
  - Throat irritation [Recovered/Resolved]
  - Cough [Recovered/Resolved]
  - Hot flush [Recovered/Resolved]
  - Poor quality product administered [Unknown]
  - Product odour abnormal [Unknown]
  - Product use in unapproved indication [Unknown]

NARRATIVE: CASE EVENT DATE: 20240601
